FAERS Safety Report 5908875-1 (Version None)
Quarter: 2008Q4

REPORT INFORMATION
  Report Type: 
  Country: None (occurrence: None)
  Receive Date: 20081006
  Receipt Date: 20080925
  Transmission Date: 20090506
  Serious: Yes (Hospitalization)
  Sender: FDA-Public Use
  Company Number: JP-AVENTIS-200812985JP

PATIENT
  Age: 56 Year
  Sex: Male

DRUGS (3)
  1. ALLEGRA [Suspect]
     Route: 048
     Dates: start: 20080914
  2. MUCOSTA [Concomitant]
     Dates: start: 20080914
  3. UNKNOWN DRUG [Concomitant]
     Indication: HYPERTENSION

REACTIONS (1)
  - LOSS OF CONSCIOUSNESS [None]
